FAERS Safety Report 6285070-0 (Version None)
Quarter: 2009Q3

REPORT INFORMATION
  Report Type: 
  Country: None (occurrence: None)
  Receive Date: 20090727
  Receipt Date: 20090716
  Transmission Date: 20100115
  Serious: Yes (Death, Life-Threatening, Hospitalization)
  Sender: FDA-Public Use
  Company Number: JP-BRISTOL-MYERS SQUIBB COMPANY-14617724

PATIENT
  Age: 58 Year
  Sex: Male

DRUGS (9)
  1. SPRYCEL [Suspect]
     Indication: ACUTE LYMPHOCYTIC LEUKAEMIA RECURRENT
     Route: 048
     Dates: start: 20090323, end: 20090406
  2. IMATINIB MESILATE [Suspect]
     Indication: ACUTE LYMPHOCYTIC LEUKAEMIA
     Dosage: ON 31JAN08-11MAR08/600 MG/DAY;17DEC08-31DEC08/400-600MG/DAY,27DEC08-31DEC08/400 MG/DAY;
     Route: 048
     Dates: start: 20090424, end: 20090507
  3. PREDNISOLONE [Concomitant]
     Dosage: TAB
     Route: 048
     Dates: start: 20090102
  4. BAKTAR [Concomitant]
     Indication: PROPHYLAXIS
     Dosage: 1 DF=1 TAB
     Route: 048
     Dates: start: 20080205
  5. VFEND [Concomitant]
     Indication: PROPHYLAXIS
     Dosage: TAB
     Route: 048
  6. ZOVIRAX [Concomitant]
     Indication: PROPHYLAXIS
     Route: 048
  7. DENOSINE [Concomitant]
     Indication: CYTOMEGALOVIRUS ANTIGEN POSITIVE
     Dosage: INJ
     Route: 042
     Dates: start: 20090401, end: 20090408
  8. VINDESINE SULFATE [Concomitant]
     Indication: ACUTE LYMPHOCYTIC LEUKAEMIA RECURRENT
     Dosage: INJ
     Route: 042
     Dates: start: 20090427, end: 20090427
  9. METHYLPREDNISOLONE SODIUM SUCCINATE [Concomitant]
     Dosage: INJ
     Route: 042
     Dates: start: 20090407, end: 20090507

REACTIONS (5)
  - INTERSTITIAL LUNG DISEASE [None]
  - MALIGNANT NEOPLASM PROGRESSION [None]
  - PERICARDIAL EFFUSION [None]
  - PLEURAL EFFUSION [None]
  - RENAL FAILURE [None]
